FAERS Safety Report 8390596-X (Version None)
Quarter: 2012Q2

REPORT INFORMATION
  Report Type: 
  Country: None (occurrence: None)
  Receive Date: 20120529
  Receipt Date: 20120522
  Transmission Date: 20120825
  Serious: Yes (Hospitalization)
  Sender: FDA-Public Use
  Company Number: PHHO2011JP17739

PATIENT
  Sex: Male
  Weight: 74 kg

DRUGS (9)
  1. SIMULECT [Concomitant]
     Indication: RENAL TRANSPLANT
     Dosage: 20 MG, UNK
  2. CERTICAN [Suspect]
     Indication: RENAL TRANSPLANT
     Dosage: 0.75 MG, UNK
     Route: 048
     Dates: start: 20090409, end: 20120130
  3. COTRIM [Concomitant]
     Indication: ANTIFUNGAL PROPHYLAXIS
     Dosage: UNK
     Route: 048
     Dates: start: 20110531, end: 20110912
  4. PREDNISOLONE [Concomitant]
     Indication: RENAL TRANSPLANT
     Dosage: UNK
     Route: 048
     Dates: start: 20090409
  5. PREDNISOLONE [Concomitant]
     Dosage: 7.5 MG, DAILY
     Route: 048
     Dates: start: 20091109
  6. LOCHOLEST [Concomitant]
     Indication: HYPERLIPIDAEMIA
     Dosage: 30 MG, UNK
     Route: 048
     Dates: start: 20100316
  7. NEORAL [Suspect]
     Indication: RENAL TRANSPLANT
     Dosage: 60 MG, BID
     Route: 048
     Dates: start: 20090409
  8. DIOVAN [Concomitant]
     Indication: HYPERTENSION
     Dosage: 80 MG, UNK
     Route: 048
     Dates: start: 20090513
  9. ISODINE [Concomitant]
     Indication: ANTIVIRAL PROPHYLAXIS
     Dosage: UNK
     Dates: start: 20090406

REACTIONS (1)
  - HLA MARKER STUDY POSITIVE [None]
